FAERS Safety Report 25939789 (Version 1)
Quarter: 2025Q4

REPORT INFORMATION
  Report Type: Report from Study
  Country: JP (occurrence: JP)
  Receive Date: 20251020
  Receipt Date: 20251020
  Transmission Date: 20260117
  Serious: Yes (Other)
  Sender: ROCHE
  Company Number: JP-ROCHE-10000407132

PATIENT

DRUGS (2)
  1. ATEZOLIZUMAB [Suspect]
     Active Substance: ATEZOLIZUMAB
     Indication: Hepatocellular carcinoma
     Route: 065
  2. BEVACIZUMAB [Suspect]
     Active Substance: BEVACIZUMAB
     Indication: Hepatocellular carcinoma
     Route: 042

REACTIONS (12)
  - Proteinuria [Unknown]
  - Ascites [Unknown]
  - Aspartate aminotransferase increased [Unknown]
  - Alanine aminotransferase increased [Unknown]
  - Hypertension [Unknown]
  - Rash [Unknown]
  - Decreased appetite [Unknown]
  - Diarrhoea [Unknown]
  - Pyrexia [Unknown]
  - Anaemia [Unknown]
  - Intestinal obstruction [Unknown]
  - Peritonitis [Unknown]
